FAERS Safety Report 9458567 (Version 1)
Quarter: 2013Q3

REPORT INFORMATION
  Report Type: Spontaneous
  Country: US (occurrence: None)
  Receive Date: 20130812
  Receipt Date: 20130812
  Transmission Date: 20140515
  Serious: Yes (Hospitalization)
  Sender: FDA-Public Use
  Company Number: 2013P1015097

PATIENT
  Age: 35 Year
  Sex: Female

DRUGS (5)
  1. FLUOXETINE [Suspect]
  2. TRIAMCINOLONE ACETONIDE [Suspect]
     Route: 014
  3. LACTULOSE [Concomitant]
  4. ZOLPIDEM [Concomitant]
  5. POTASSIUM CHLORIDE [Concomitant]

REACTIONS (5)
  - Adrenal suppression [None]
  - Peptic ulcer [None]
  - Blood pressure decreased [None]
  - Alkalosis [None]
  - Hypokalaemia [None]
